FAERS Safety Report 13516251 (Version 1)
Quarter: 2017Q2

REPORT INFORMATION
  Report Type: Spontaneous
  Country: US (occurrence: US)
  Receive Date: 20170505
  Receipt Date: 20170505
  Transmission Date: 20170830
  Serious: No
  Sender: FDA-Public Use
  Company Number: US-BAUSCH-BL-2016-013459

PATIENT
  Age: 62 Year
  Sex: Female
  Weight: 32.69 kg

DRUGS (6)
  1. VITAMIN D [Concomitant]
     Active Substance: CHOLECALCIFEROL
     Indication: PRODUCT USED FOR UNKNOWN INDICATION
     Route: 048
  2. COUMADIN [Concomitant]
     Active Substance: WARFARIN SODIUM
     Indication: AORTIC VALVE REPLACEMENT
     Route: 048
     Dates: start: 201302
  3. COUMADIN [Concomitant]
     Active Substance: WARFARIN SODIUM
     Route: 048
     Dates: start: 201302
  4. IRON [Concomitant]
     Active Substance: IRON
     Indication: PRODUCT USED FOR UNKNOWN INDICATION
     Route: 048
  5. ALREX [Suspect]
     Active Substance: LOTEPREDNOL ETABONATE
     Indication: EYE DISCHARGE
     Route: 047
     Dates: start: 20160603
  6. CLONAZEPAM. [Concomitant]
     Active Substance: CLONAZEPAM
     Indication: RESTLESS LEGS SYNDROME
     Route: 048

REACTIONS (1)
  - International normalised ratio decreased [Not Recovered/Not Resolved]

NARRATIVE: CASE EVENT DATE: 20160606
